FAERS Safety Report 18140742 (Version 1)
Quarter: 2020Q3

REPORT INFORMATION
  Report Type: Spontaneous
  Country: GB (occurrence: GB)
  Receive Date: 20200812
  Receipt Date: 20200812
  Transmission Date: 20201103
  Serious: Yes (Hospitalization, Other)
  Sender: FDA-Public Use
  Company Number: GB-PFIZER INC-2020307186

PATIENT
  Age: 77 Year
  Sex: Female
  Weight: 77.2 kg

DRUGS (1)
  1. ZESSLY [Suspect]
     Active Substance: INFLIXIMAB
     Indication: CROHN^S DISEASE
     Dosage: 800 MG, UNK
     Route: 065
     Dates: start: 20200722, end: 20200722

REACTIONS (3)
  - Respiratory rate increased [Unknown]
  - Chest discomfort [Unknown]
  - Acute cardiac event [Recovered/Resolved]

NARRATIVE: CASE EVENT DATE: 20200722
